FAERS Safety Report 4420880-3 (Version None)
Quarter: 2004Q3

REPORT INFORMATION
  Report Type: 
  Country: None (occurrence: None)
  Receive Date: 20040809
  Receipt Date: 20040803
  Transmission Date: 20050211
  Serious: Yes (Death)
  Sender: FDA-Public Use
  Company Number: MY-MERCK-0408MYS00002

PATIENT

DRUGS (1)
  1. CANCIDAS [Suspect]
     Route: 041
     Dates: start: 20040701, end: 20040101

REACTIONS (1)
  - DEATH [None]
